FAERS Safety Report 16190757 (Version 2)
Quarter: 2019Q2

REPORT INFORMATION
  Report Type: Spontaneous
  Country: US (occurrence: US)
  Receive Date: 20190412
  Receipt Date: 20190419
  Transmission Date: 20190711
  Serious: Yes (Life-Threatening, Hospitalization, Other)
  Sender: FDA-Public Use
  Company Number: US-VALIDUS PHARMACEUTICALS LLC-US-2019VAL000196

PATIENT

DRUGS (1)
  1. FUROSEMIDE. [Suspect]
     Active Substance: FUROSEMIDE
     Indication: DIASTOLIC DYSFUNCTION
     Dosage: UNK
     Route: 065

REACTIONS (8)
  - Acute respiratory failure [Unknown]
  - Blister [Unknown]
  - Respiratory failure [Unknown]
  - Erythema [Unknown]
  - Pemphigoid [Unknown]
  - Mucosal erosion [Unknown]
  - Septic shock [Unknown]
  - Inferior vena caval occlusion [Unknown]
